FAERS Safety Report 10739610 (Version 1)
Quarter: 2015Q1

REPORT INFORMATION
  Report Type: Spontaneous
  Country: US (occurrence: TH)
  Receive Date: 20150126
  Receipt Date: 20150126
  Transmission Date: 20150721
  Serious: Yes (Hospitalization)
  Sender: FDA-Public Use
  Company Number: US-JNJFOC-20150112015

PATIENT
  Age: 5 Year
  Sex: Female

DRUGS (1)
  1. JR TYLENOL [Suspect]
     Active Substance: ACETAMINOPHEN
     Indication: MEDICATION ERROR
     Route: 048
     Dates: start: 20061022, end: 20061022

REACTIONS (2)
  - Toxicity to various agents [Unknown]
  - Accidental exposure to product by child [None]

NARRATIVE: CASE EVENT DATE: 20061022
